FAERS Safety Report 9694176 (Version 3)
Quarter: 2014Q2

REPORT INFORMATION
  Report Type: Spontaneous
  Country: IT (occurrence: IT)
  Receive Date: 20131118
  Receipt Date: 20140605
  Transmission Date: 20141212
  Serious: Yes (Life-Threatening, Hospitalization)
  Sender: FDA-Public Use
  Company Number: IT-ASTRAZENECA-2013SE81655

PATIENT
  Age: 23639 Day
  Sex: Male

DRUGS (7)
  1. BRILIQUE [Suspect]
     Indication: CORONARY ARTERY DISEASE
     Route: 048
     Dates: start: 20131105
  2. AZD6140 CODE NOT BROKEN [Suspect]
     Indication: CORONARY ARTERY DISEASE
     Route: 048
     Dates: start: 20111029, end: 20131030
  3. PANTOPRAZOL [Concomitant]
     Indication: PEPTIC ULCER
     Route: 048
  4. CLORTALIDONE [Concomitant]
     Indication: HYPERTENSION
     Route: 048
  5. ATORVASTATIN [Concomitant]
     Indication: ISCHAEMIC HEART DISEASE PROPHYLAXIS
     Route: 048
  6. ZOFENOPRIL [Concomitant]
     Indication: HYPERTENSION
     Route: 048
  7. ASA [Concomitant]
     Route: 048

REACTIONS (3)
  - Sinus bradycardia [Recovered/Resolved]
  - Ventricular fibrillation [Recovered/Resolved]
  - Dyspnoea [Recovered/Resolved]
